FAERS Safety Report 17429563 (Version 1)
Quarter: 2020Q1

REPORT INFORMATION
  Report Type: Spontaneous
  Country: US (occurrence: US)
  Receive Date: 20200203
  Receipt Date: 20200203
  Transmission Date: 20200409
  Serious: No
  Sender: FDA-Public Use
  Company Number: None

PATIENT
  Age: 19 Month
  Sex: Male

DRUGS (1)
  1. VIGABATRIN POWDER [Suspect]
     Active Substance: VIGABATRIN
     Route: 048
     Dates: start: 20190223

REACTIONS (1)
  - Eye pruritus [None]

NARRATIVE: CASE EVENT DATE: 201912
